FAERS Safety Report 12464973 (Version 1)
Quarter: 2016Q2

REPORT INFORMATION
  Report Type: Report from Study
  Country: US (occurrence: US)
  Receive Date: 20160614
  Receipt Date: 20160614
  Transmission Date: 20160815
  Serious: Yes (Hospitalization, Other)
  Sender: FDA-Public Use
  Company Number: US-CELGENEUS-USA-2016062563

PATIENT
  Age: 69 Year

DRUGS (5)
  1. REVLIMID [Suspect]
     Active Substance: LENALIDOMIDE
     Indication: PLASMA CELL MYELOMA
     Route: 048
     Dates: start: 20150105, end: 20150302
  2. REVLIMID [Suspect]
     Active Substance: LENALIDOMIDE
     Route: 048
     Dates: start: 20150806, end: 20150825
  3. REVLIMID [Suspect]
     Active Substance: LENALIDOMIDE
     Route: 048
     Dates: start: 20150303, end: 20150417
  4. REVLIMID [Suspect]
     Active Substance: LENALIDOMIDE
     Route: 048
     Dates: start: 20150910, end: 20150917
  5. REVLIMID [Suspect]
     Active Substance: LENALIDOMIDE
     Route: 048
     Dates: start: 20150418, end: 20150610

REACTIONS (2)
  - Febrile neutropenia [Recovered/Resolved]
  - Postoperative wound infection [Unknown]

NARRATIVE: CASE EVENT DATE: 20160507
